FAERS Safety Report 12226407 (Version 2)
Quarter: 2016Q2

REPORT INFORMATION
  Report Type: Report from Study
  Country: BR (occurrence: BR)
  Receive Date: 20160331
  Receipt Date: 20160415
  Transmission Date: 20160815
  Serious: Yes (Life-Threatening, Other)
  Sender: FDA-Public Use
  Company Number: PHHY2016BR042165

PATIENT
  Sex: Female
  Weight: 54 kg

DRUGS (6)
  1. XARELTO [Concomitant]
     Active Substance: RIVAROXABAN
     Indication: ARRHYTHMIA
     Dosage: 40 MG, QD
     Route: 048
  2. SELOZOK [Concomitant]
     Active Substance: METOPROLOL SUCCINATE
     Indication: ARRHYTHMIA
     Dosage: 20 MG, QD
     Route: 048
     Dates: start: 201601
  3. TAPAZOL [Concomitant]
     Indication: HYPERTHYROIDISM
     Dosage: 10 MG, QD, 15 YEARS AGO
     Route: 048
  4. EXELON PATCH [Suspect]
     Active Substance: RIVASTIGMINE
     Indication: MEMORY IMPAIRMENT
     Dosage: 1 DF, QD
     Route: 062
     Dates: start: 201510, end: 20151222
  5. RITMONORM [Concomitant]
     Active Substance: PROPAFENONE HYDROCHLORIDE
     Indication: ARRHYTHMIA
     Dosage: 300 MG, QD
     Route: 048
     Dates: start: 201505
  6. EXELON PATCH [Suspect]
     Active Substance: RIVASTIGMINE
     Indication: CONFUSIONAL STATE

REACTIONS (11)
  - Dyspnoea [Recovering/Resolving]
  - Confusional state [Unknown]
  - Condition aggravated [Unknown]
  - Fatigue [Recovering/Resolving]
  - Weight decreased [Unknown]
  - Decreased appetite [Unknown]
  - Speech disorder [Unknown]
  - Muscle atrophy [Recovering/Resolving]
  - Hypersomnia [Recovering/Resolving]
  - Malaise [Unknown]
  - Apparent death [Recovering/Resolving]
